FAERS Safety Report 5169021-8 (Version None)
Quarter: 2006Q4

REPORT INFORMATION
  Report Type: 
  Country: None (occurrence: None)
  Receive Date: 20061211
  Receipt Date: 20061201
  Transmission Date: 20070319
  Serious: Yes (Other)
  Sender: FDA-Public Use
  Company Number: US-JNJFOC-20061200901

PATIENT
  Sex: Female

DRUGS (9)
  1. INFLIXIMAB [Suspect]
     Indication: RHEUMATOID ARTHRITIS
     Route: 042
  2. CELEBREX [Concomitant]
  3. METHOTREXATE [Concomitant]
  4. ADALAT [Concomitant]
  5. PLAQUENIL [Concomitant]
  6. PREDNISONE TAB [Concomitant]
  7. FOLIC ACID [Concomitant]
  8. CALCIUM [Concomitant]
  9. B-12 [Concomitant]

REACTIONS (1)
  - SQUAMOUS CELL CARCINOMA [None]
